FAERS Safety Report 19578043 (Version 4)
Quarter: 2021Q3

REPORT INFORMATION
  Report Type: Spontaneous
  Country: JP (occurrence: JP)
  Receive Date: 20210719
  Receipt Date: 20210801
  Transmission Date: 20211014
  Serious: Yes (Hospitalization)
  Sender: FDA-Public Use
  Company Number: JP-JNJFOC-20210727370

PATIENT

DRUGS (4)
  1. DUROTEP [Suspect]
     Active Substance: FENTANYL
  2. DUROTEP [Suspect]
     Active Substance: FENTANYL
     Indication: CANCER PAIN
     Dosage: UNKNOWN
     Route: 062
  3. DUROTEP [Suspect]
     Active Substance: FENTANYL
  4. DUROTEP [Suspect]
     Active Substance: FENTANYL

REACTIONS (4)
  - Product adhesion issue [Unknown]
  - Inappropriate schedule of product administration [Unknown]
  - Hospitalisation [Unknown]
  - Off label use [Unknown]
